FAERS Safety Report 9467371 (Version 1)
Quarter: 2013Q3

REPORT INFORMATION
  Report Type: Spontaneous
  Country: US (occurrence: None)
  Receive Date: 20130819
  Receipt Date: 20130819
  Transmission Date: 20140515
  Serious: Yes (Hospitalization)
  Sender: FDA-Public Use
  Company Number: None

PATIENT
  Age: 66 Year
  Sex: Male
  Weight: 105.9 kg

DRUGS (1)
  1. HYDROCHLOROTHIAZIDE/LISINOPRIL [Suspect]
     Indication: HYPERTENSION
     Dosage: MG   PO?~01/16/2013 THRU 08/08/2013
     Route: 048
     Dates: start: 20130116, end: 20130808

REACTIONS (5)
  - Lip swelling [None]
  - Bronchitis [None]
  - Dyspepsia [None]
  - Chest discomfort [None]
  - Angioedema [None]
